FAERS Safety Report 19022321 (Version 1)
Quarter: 2021Q1

REPORT INFORMATION
  Report Type: Spontaneous
  Country: CN (occurrence: CN)
  Receive Date: 20210317
  Receipt Date: 20210317
  Transmission Date: 20210420
  Serious: Yes (Other)
  Sender: FDA-Public Use
  Company Number: CN-PFIZER INC-2021269558

PATIENT
  Age: 12 Year
  Sex: Female
  Weight: 35 kg

DRUGS (2)
  1. METHOTREXATE. [Suspect]
     Active Substance: METHOTREXATE
     Indication: CHEMOTHERAPY
     Dosage: 4800 MG, 1X/DAY
     Route: 041
     Dates: start: 20210222, end: 20210222
  2. DEXAMETHASONE. [Concomitant]
     Active Substance: DEXAMETHASONE
     Dosage: UNK

REACTIONS (1)
  - Mucosal erosion [Recovering/Resolving]

NARRATIVE: CASE EVENT DATE: 20210227
